FAERS Safety Report 9430508 (Version 1)
Quarter: 2013Q3

REPORT INFORMATION
  Report Type: Spontaneous
  Country: DE (occurrence: DE)
  Receive Date: 20130730
  Receipt Date: 20130730
  Transmission Date: 20140515
  Serious: Yes (Life-Threatening, Hospitalization)
  Sender: FDA-Public Use
  Company Number: DE-GLAXOSMITHKLINE-D0080510A

PATIENT
  Age: 25 Year
  Sex: Female
  Weight: 65 kg

DRUGS (2)
  1. REVOLADE [Suspect]
     Indication: IMMUNE THROMBOCYTOPENIC PURPURA
     Route: 048
     Dates: start: 20120618, end: 20130626
  2. ANTICONCEPTIONAL PILLS [Concomitant]
     Indication: CONTRACEPTION
     Route: 048
     Dates: start: 2004

REACTIONS (7)
  - Portal vein thrombosis [Recovering/Resolving]
  - Post procedural haemorrhage [Recovering/Resolving]
  - Splenic vein thrombosis [Recovering/Resolving]
  - Pleural effusion [Recovering/Resolving]
  - Pneumonia [Recovering/Resolving]
  - Post procedural haematoma [Recovering/Resolving]
  - Staphylococcal infection [Recovering/Resolving]
